FAERS Safety Report 12542004 (Version 5)
Quarter: 2017Q3

REPORT INFORMATION
  Report Type: Spontaneous
  Country: US (occurrence: US)
  Receive Date: 20160708
  Receipt Date: 20170907
  Transmission Date: 20171127
  Serious: No
  Sender: FDA-Public Use
  Company Number: US-ACTELION-A-US2016-138206

PATIENT
  Age: 73 Year
  Sex: Female
  Weight: 91.16 kg

DRUGS (4)
  1. FLORASTOR [Concomitant]
     Active Substance: SACCHAROMYCES CEREVISIAE
  2. OPSUMIT [Suspect]
     Active Substance: MACITENTAN
     Indication: PULMONARY ARTERIAL HYPERTENSION
     Dosage: 10 MG, QD
     Route: 048
     Dates: start: 20160620
  3. AMLODIPINE [Concomitant]
     Active Substance: AMLODIPINE BESYLATE
  4. CEPHALEXIN. [Concomitant]
     Active Substance: CEPHALEXIN

REACTIONS (8)
  - Vision blurred [Unknown]
  - Hyperhidrosis [Unknown]
  - Lethargy [Unknown]
  - Urinary tract infection [Unknown]
  - Arthritis [Unknown]
  - Asthenia [Unknown]
  - Chills [Unknown]
  - Fatigue [Unknown]
